FAERS Safety Report 7641159-2 (Version None)
Quarter: 2011Q3

REPORT INFORMATION
  Report Type: 
  Country: None (occurrence: None)
  Receive Date: 20110728
  Receipt Date: 20110715
  Transmission Date: 20111222
  Serious: Yes (Other)
  Sender: FDA-Public Use
  Company Number: PHEH2011US00511

PATIENT
  Sex: Male

DRUGS (1)
  1. AREDIA [Suspect]
     Indication: OSTEOPOROSIS PROPHYLAXIS
     Dates: start: 20010101, end: 20020101

REACTIONS (20)
  - OSTEOLYSIS [None]
  - ARTHRALGIA [None]
  - ABASIA [None]
  - VOMITING [None]
  - PAIN OF SKIN [None]
  - PARAESTHESIA [None]
  - DYSAESTHESIA [None]
  - DIABETIC GASTROPARESIS [None]
  - NEPHROLITHIASIS [None]
  - INTERVERTEBRAL DISC PROTRUSION [None]
  - DEPRESSION [None]
  - ABDOMINAL PAIN [None]
  - COMPRESSION FRACTURE [None]
  - INTERVERTEBRAL DISC DEGENERATION [None]
  - ORTHOSTATIC HYPOTENSION [None]
  - BONE PAIN [None]
  - HYPOAESTHESIA [None]
  - NAUSEA [None]
  - DIVERTICULUM INTESTINAL [None]
  - BACK PAIN [None]
